FAERS Safety Report 23025820 (Version 1)
Quarter: 2023Q4

REPORT INFORMATION
  Report Type: Spontaneous
  Country: US (occurrence: US)
  Receive Date: 20231004
  Receipt Date: 20231004
  Transmission Date: 20240110
  Serious: No
  Sender: FDA-Public Use
  Company Number: US-LUNDBECK-DKLU3067754

PATIENT
  Age: 2 Year
  Sex: Female

DRUGS (1)
  1. SABRIL [Suspect]
     Active Substance: VIGABATRIN
     Indication: Infantile spasms
     Route: 048
     Dates: start: 202304

REACTIONS (4)
  - Blepharospasm [Unknown]
  - Muscle twitching [Unknown]
  - Recalled product administered [Unknown]
  - Product contamination [Unknown]
